FAERS Safety Report 10178962 (Version 3)
Quarter: 2015Q1

REPORT INFORMATION
  Report Type: Spontaneous
  Country: US (occurrence: US)
  Receive Date: 20140519
  Receipt Date: 20150319
  Transmission Date: 20150720
  Serious: No
  Sender: FDA-Public Use
  Company Number: US-BIOGENIDEC-2014BI041199

PATIENT
  Age: 57 Year
  Sex: Male

DRUGS (9)
  1. TECFIDERA [Suspect]
     Active Substance: DIMETHYL FUMARATE
     Indication: MULTIPLE SCLEROSIS
     Route: 048
     Dates: start: 20140307
  2. NEURONTIN [Concomitant]
     Active Substance: GABAPENTIN
     Indication: PRODUCT USED FOR UNKNOWN INDICATION
  3. AMPYRA [Concomitant]
     Active Substance: DALFAMPRIDINE
     Indication: PRODUCT USED FOR UNKNOWN INDICATION
  4. FENOFIBRATE. [Concomitant]
     Active Substance: FENOFIBRATE
     Indication: PRODUCT USED FOR UNKNOWN INDICATION
  5. XANAX [Concomitant]
     Active Substance: ALPRAZOLAM
     Indication: PRODUCT USED FOR UNKNOWN INDICATION
  6. ZANAFLEX [Concomitant]
     Active Substance: TIZANIDINE HYDROCHLORIDE
     Indication: PRODUCT USED FOR UNKNOWN INDICATION
  7. BACLOFEN. [Concomitant]
     Active Substance: BACLOFEN
     Indication: PRODUCT USED FOR UNKNOWN INDICATION
  8. NORVASC [Concomitant]
     Active Substance: AMLODIPINE BESYLATE
     Indication: PRODUCT USED FOR UNKNOWN INDICATION
  9. ULTRAM ER [Concomitant]
     Active Substance: TRAMADOL HYDROCHLORIDE
     Indication: PRODUCT USED FOR UNKNOWN INDICATION

REACTIONS (1)
  - Weight increased [Not Recovered/Not Resolved]

NARRATIVE: CASE EVENT DATE: 20150302
